FAERS Safety Report 9458141 (Version 1)
Quarter: 2013Q3

REPORT INFORMATION
  Report Type: Spontaneous
  Country: TW (occurrence: None)
  Receive Date: 20130812
  Receipt Date: 20130812
  Transmission Date: 20140515
  Serious: Yes (Disabling)
  Sender: FDA-Public Use
  Company Number: 1830463

PATIENT
  Age: 36 Year
  Sex: Male

DRUGS (5)
  1. HEPARIN SODIUM [Suspect]
     Indication: PERCUTANEOUS CORONARY INTERVENTION
  2. ASPIRIN [Suspect]
     Indication: ANTIPLATELET THERAPY
     Route: 048
  3. CLOPIDOGREL [Suspect]
     Indication: ANTIPLATELET THERAPY
  4. ABCIXIMAB [Suspect]
     Indication: INFARCTION
  5. ENOXAPARIN [Suspect]
     Indication: PRODUCT USED FOR UNKNOWN INDICATION

REACTIONS (5)
  - Exophthalmos [None]
  - Vision blurred [None]
  - Diplopia [None]
  - Intraocular pressure increased [None]
  - Periorbital haemorrhage [None]
